FAERS Safety Report 10649401 (Version 1)
Quarter: 2014Q4

REPORT INFORMATION
  Report Type: Spontaneous
  Country: GB (occurrence: None)
  Receive Date: 20141210
  Receipt Date: 20141210
  Transmission Date: 20150529
  Serious: Yes (Other)
  Sender: FDA-Public Use
  Company Number: 2014-20899

PATIENT
  Age: 45 Year
  Sex: Female

DRUGS (1)
  1. EYLEA [Suspect]
     Active Substance: AFLIBERCEPT
     Indication: VENOUS OCCLUSION
     Route: 047
     Dates: start: 20141126

REACTIONS (4)
  - Photophobia [None]
  - Eye pain [None]
  - Ocular hyperaemia [None]
  - Endophthalmitis [None]

NARRATIVE: CASE EVENT DATE: 20141128
